FAERS Safety Report 5412842-4 (Version None)
Quarter: 2007Q3

REPORT INFORMATION
  Report Type: 
  Country: None (occurrence: None)
  Receive Date: 20070713
  Receipt Date: 20070509
  Transmission Date: 20080115
  Serious: No
  Sender: FDA-Public Use
  Company Number: 2007SP001720

PATIENT
  Age: 51 Year
  Sex: Female
  Weight: 61.6892 kg

DRUGS (3)
  1. LUNESTA [Suspect]
     Indication: INSOMNIA
     Dosage: 2 MG;1X;ORAL , 2 MG;HS;ORAL,  2 MG; ORAL
     Route: 048
     Dates: start: 20060101, end: 20070501
  2. LUNESTA [Suspect]
     Indication: INSOMNIA
     Dosage: 2 MG;1X;ORAL , 2 MG;HS;ORAL,  2 MG; ORAL
     Route: 048
     Dates: start: 20070504, end: 20070504
  3. LUNESTA [Suspect]
     Indication: INSOMNIA
     Dosage: 2 MG;1X;ORAL , 2 MG;HS;ORAL,  2 MG; ORAL
     Route: 048
     Dates: start: 20070501

REACTIONS (1)
  - INSOMNIA [None]
